FAERS Safety Report 15583334 (Version 1)
Quarter: 2018Q4

REPORT INFORMATION
  Report Type: Report from Study
  Country: JP (occurrence: JP)
  Receive Date: 20181103
  Receipt Date: 20181103
  Transmission Date: 20190205
  Serious: Yes (Life-Threatening)
  Sender: FDA-Public Use
  Company Number: JP-IPSEN BIOPHARMACEUTICALS, INC.-2018-07391

PATIENT
  Age: 75 Year
  Sex: Male

DRUGS (7)
  1. AMLODIPINE [Concomitant]
     Active Substance: AMLODIPINE BESYLATE
     Dosage: 5 MILLIGRAM/DAY
     Route: 048
  2. LANREOTIDE [Suspect]
     Active Substance: LANREOTIDE
     Dosage: TWO TO SIX WEEKS
     Route: 058
     Dates: start: 20180829
  3. BAYASPIRIN [Concomitant]
     Active Substance: ASPIRIN
     Dosage: 100 MILLIGRAM/DAY
     Route: 048
     Dates: end: 20160301
  4. ARTIST [Concomitant]
     Active Substance: CARVEDILOL
     Dosage: 10 MILLIGRAM/DAY
     Route: 048
  5. ELIQUIS [Concomitant]
     Active Substance: APIXABAN
     Dosage: 10 MILLIGRAM/DAY
     Route: 048
  6. LANREOTIDE [Suspect]
     Active Substance: LANREOTIDE
     Indication: ACROMEGALY
     Dosage: 90 MG
     Route: 058
     Dates: start: 20140704, end: 20140801
  7. ETIZOLAM [Concomitant]
     Active Substance: ETIZOLAM
     Dosage: 0.5 MILLIGRAM/DAY
     Route: 048

REACTIONS (9)
  - Prostate cancer [Recovering/Resolving]
  - Irritable bowel syndrome [Recovered/Resolved]
  - Prescribed underdose [Unknown]
  - Glycosylated haemoglobin increased [Recovering/Resolving]
  - Proteinuria [Recovered/Resolved]
  - Injection site pain [Recovered/Resolved]
  - Insomnia [Recovered/Resolved]
  - Diarrhoea [Recovered/Resolved]
  - Diverticulum intestinal [Recovered/Resolved]

NARRATIVE: CASE EVENT DATE: 20140829
